FAERS Safety Report 25043726 (Version 1)
Quarter: 2025Q1

REPORT INFORMATION
  Report Type: Report from Study
  Country: TW (occurrence: TW)
  Receive Date: 20250306
  Receipt Date: 20250306
  Transmission Date: 20250408
  Serious: Yes (Hospitalization, Other)
  Sender: Haleon PLC
  Company Number: TW-HALEON-2210376

PATIENT
  Age: 84 Year
  Sex: Female

DRUGS (2)
  1. DICLOFENAC [Suspect]
     Active Substance: DICLOFENAC
     Indication: Product used for unknown indication
  2. MEFENAMIC ACID [Suspect]
     Active Substance: MEFENAMIC ACID
     Indication: Product used for unknown indication

REACTIONS (5)
  - Stevens-Johnson syndrome [Unknown]
  - Rash maculo-papular [Unknown]
  - Monocytosis [Unknown]
  - Blister [Unknown]
  - Severe cutaneous adverse reaction [Unknown]
